FAERS Safety Report 24463086 (Version 1)
Quarter: 2024Q4

REPORT INFORMATION
  Report Type: Report from Study
  Country: CA (occurrence: CA)
  Receive Date: 20241018
  Receipt Date: 20241018
  Transmission Date: 20250115
  Serious: No
  Sender: ROCHE
  Company Number: CA-002147023-NVSC2020CA145177

PATIENT
  Age: 45 Year
  Sex: Female
  Weight: 140.0 kg

DRUGS (19)
  1. XOLAIR [Suspect]
     Active Substance: OMALIZUMAB
     Indication: Asthma
     Dosage: 375 MG, BIW
     Route: 058
     Dates: start: 20200320
  2. XOLAIR [Suspect]
     Active Substance: OMALIZUMAB
     Dosage: 375 MG, BIW
     Route: 058
     Dates: start: 20200323
  3. XOLAIR [Suspect]
     Active Substance: OMALIZUMAB
     Dosage: 375 MG, BIW
     Route: 058
  4. XOLAIR [Suspect]
     Active Substance: OMALIZUMAB
     Dosage: 375 MG, BIW
     Route: 058
     Dates: start: 20210329
  5. DESLORATADINE [Concomitant]
     Active Substance: DESLORATADINE
     Indication: Hypersensitivity
     Dosage: 1 DF, QD
     Route: 048
     Dates: start: 2014
  6. DESLORATADINE [Concomitant]
     Active Substance: DESLORATADINE
     Dosage: 5 MG
     Route: 065
  7. NYSTATIN [Concomitant]
     Active Substance: NYSTATIN
     Indication: Product used for unknown indication
     Dosage: 3 DOSAGE FORM, QD
  8. TIOTROPIUM [Concomitant]
     Active Substance: TIOTROPIUM
     Indication: Product used for unknown indication
     Dosage: UNK, BID (STRENGTH 2.5 MICROGRAM, 2 SPRAYS)
  9. SINGULAIR [Concomitant]
     Active Substance: MONTELUKAST SODIUM
     Indication: Product used for unknown indication
     Dosage: UNK, QD
  10. PANTOPRAZOLE [Concomitant]
     Active Substance: PANTOPRAZOLE
     Indication: Gastrointestinal disorder
     Dosage: UNK, QD
     Dates: start: 20220705
  11. FLOVENT [Concomitant]
     Active Substance: FLUTICASONE PROPIONATE
     Indication: Asthma
     Dosage: 2 DF, BID
     Route: 055
     Dates: start: 201712
  12. SPIRIVA [Concomitant]
     Active Substance: TIOTROPIUM BROMIDE MONOHYDRATE
     Indication: Asthma
     Dosage: 2 DF, QD
     Route: 055
     Dates: start: 201712
  13. VENTOLIN [Concomitant]
     Active Substance: ALBUTEROL SULFATE
     Indication: Asthma
     Dosage: 2 DF, PRN
     Route: 055
     Dates: start: 2008
  14. SYMBICORT [Concomitant]
     Active Substance: BUDESONIDE\FORMOTEROL FUMARATE DIHYDRATE
     Indication: Asthma
     Dosage: 2 DF, QID (200/6, MCG)
     Route: 055
     Dates: start: 2015
  15. MONTELUKAST [Concomitant]
     Active Substance: MONTELUKAST
     Indication: Asthma
     Dosage: 20 MG, QD
     Route: 048
     Dates: start: 2015
  16. MONTELUKAST [Concomitant]
     Active Substance: MONTELUKAST
     Dosage: 10 MG
     Route: 065
  17. PREDNISONE [Concomitant]
     Active Substance: PREDNISONE
     Indication: Asthma
     Route: 065
     Dates: start: 2021
  18. PREDNISONE [Concomitant]
     Active Substance: PREDNISONE
     Route: 065
     Dates: start: 20220313
  19. PREDNISONE [Concomitant]
     Active Substance: PREDNISONE
     Dosage: FOR 1 WEEK
     Route: 065
     Dates: start: 20220508

REACTIONS (14)
  - Asthma [Unknown]
  - Cough [Unknown]
  - Wheezing [Unknown]
  - Dyspnoea [Unknown]
  - General physical health deterioration [Unknown]
  - Infection [Unknown]
  - Vasculitis [Unknown]
  - Weight decreased [Unknown]
  - Middle insomnia [Unknown]
  - Abdominal discomfort [Unknown]
  - Oral candidiasis [Unknown]
  - COVID-19 [Unknown]
  - Rash papular [Unknown]
  - Drug ineffective [Unknown]

NARRATIVE: CASE EVENT DATE: 20210101
